FAERS Safety Report 22063455 (Version 1)
Quarter: 2023Q1

REPORT INFORMATION
  Report Type: Spontaneous
  Country: GB (occurrence: GB)
  Receive Date: 20230306
  Receipt Date: 20230306
  Transmission Date: 20230418
  Serious: Yes (Hospitalization, Other)
  Sender: FDA-Public Use
  Company Number: GB-STRIDES ARCOLAB LIMITED-2023SP003147

PATIENT
  Sex: Female

DRUGS (21)
  1. ETOPOSIDE [Suspect]
     Active Substance: ETOPOSIDE
     Indication: Germ cell cancer
     Dosage: UNK, NEOADJUVANT CHEMOTHERAPY
     Route: 065
  2. ETOPOSIDE [Suspect]
     Active Substance: ETOPOSIDE
     Dosage: UNK, CYCLICAL, SIX CYCLES
     Route: 065
  3. ETOPOSIDE [Suspect]
     Active Substance: ETOPOSIDE
     Dosage: UNK, CYCLICAL, POMB/ACE REGIMEN
     Route: 065
  4. ETOPOSIDE [Suspect]
     Active Substance: ETOPOSIDE
     Dosage: UNK, CYCLICAL, PACLITAXEL AND ETOPOSIDE
     Route: 065
  5. CARBOPLATIN [Suspect]
     Active Substance: CARBOPLATIN
     Indication: Germ cell cancer
     Dosage: UNK, NEOADJUVANT CHEMOTHERAPY
     Route: 065
  6. CARBOPLATIN [Suspect]
     Active Substance: CARBOPLATIN
     Dosage: UNK
     Route: 065
  7. CARBOPLATIN [Suspect]
     Active Substance: CARBOPLATIN
     Dosage: UNK, CYCLICAL, CONTINUED AT REDUCED DOSES
     Route: 065
  8. CISPLATIN [Suspect]
     Active Substance: CISPLATIN
     Indication: Germ cell cancer
     Dosage: UNK UNK, CYCLICAL (SIX CYCLES)
     Route: 065
  9. METHOTREXATE [Suspect]
     Active Substance: METHOTREXATE
     Indication: Germ cell cancer
     Dosage: UNK UNK, CYCLICAL
     Route: 065
  10. ADRIAMYCIN [Suspect]
     Active Substance: DOXORUBICIN HYDROCHLORIDE
     Indication: Germ cell cancer
     Dosage: UNK
     Route: 065
  11. ADRIAMYCIN [Suspect]
     Active Substance: DOXORUBICIN HYDROCHLORIDE
     Dosage: UNK, MONOTHERAPY
     Route: 065
  12. VINCRISTINE [Suspect]
     Active Substance: VINCRISTINE
     Indication: Germ cell cancer
     Dosage: UNK
     Route: 065
  13. VINCRISTINE [Suspect]
     Active Substance: VINCRISTINE
     Dosage: UNK, CYCLICAL, POMB/ACE REGIMEN
     Route: 065
  14. BLEOMYCIN [Suspect]
     Active Substance: BLEOMYCIN SULFATE
     Indication: Germ cell cancer
     Dosage: UNK,NEOADJUVANT CHEMOTHERAPY
     Route: 065
  15. BLEOMYCIN [Suspect]
     Active Substance: BLEOMYCIN SULFATE
     Dosage: UNK, CYCLICAL, POMB/ACE REGIMEN
     Route: 065
  16. ACTINOMYCIN D [Suspect]
     Active Substance: DACTINOMYCIN
     Indication: Germ cell cancer
     Dosage: UNK
     Route: 065
  17. ACTINOMYCIN D [Suspect]
     Active Substance: DACTINOMYCIN
     Dosage: UNK, CYCLICAL, POMB/ACE REGIMEN
     Route: 065
  18. CYCLOPHOSPHAMIDE [Suspect]
     Active Substance: CYCLOPHOSPHAMIDE
     Indication: Germ cell cancer
     Dosage: UNK
     Route: 065
  19. CYCLOPHOSPHAMIDE [Suspect]
     Active Substance: CYCLOPHOSPHAMIDE
     Dosage: UNK, CYCLICAL, POMB/ACE REGIMEN
     Route: 065
  20. PACLITAXEL [Suspect]
     Active Substance: PACLITAXEL
     Indication: Germ cell cancer
     Dosage: UNK, CYCLICAL
     Route: 065
  21. PLATINUM [Suspect]
     Active Substance: PLATINUM
     Indication: Germ cell cancer
     Dosage: UNK, CYCLICAL
     Route: 065

REACTIONS (10)
  - Pancytopenia [Recovered/Resolved]
  - Subdural haemorrhage [Unknown]
  - Electrolyte imbalance [Unknown]
  - Acute kidney injury [Unknown]
  - Myelosuppression [Unknown]
  - Sepsis [Recovered/Resolved]
  - Urosepsis [Unknown]
  - COVID-19 [Unknown]
  - Neoplasm progression [Unknown]
  - Off label use [Unknown]
